FAERS Safety Report 6435193-8 (Version None)
Quarter: 2009Q4

REPORT INFORMATION
  Report Type: 
  Country: None (occurrence: None)
  Receive Date: 20091110
  Receipt Date: 20091105
  Transmission Date: 20100525
  Serious: Yes (Hospitalization)
  Sender: FDA-Public Use
  Company Number: ES-WYE-G04697609

PATIENT
  Age: 72 Year
  Sex: Female

DRUGS (10)
  1. TAZOCEL [Suspect]
     Indication: INFECTION
     Route: 042
     Dates: start: 20090514, end: 20090601
  2. PANTOPRAZOLE [Concomitant]
     Dates: start: 20090429
  3. ENOXAPARIN SODIUM [Concomitant]
     Route: 058
     Dates: start: 20090429
  4. SEGURIL [Concomitant]
     Route: 042
     Dates: start: 20090525
  5. DIGOXIN [Concomitant]
     Indication: ATRIAL FIBRILLATION
     Route: 048
     Dates: start: 20090520
  6. CLOXACILLIN [Concomitant]
     Indication: INFECTION
     Route: 042
     Dates: start: 20090520
  7. URBASON [Concomitant]
     Indication: BRONCHOSPASM
     Route: 042
     Dates: start: 20090525, end: 20090531
  8. VANCOMYCIN [Concomitant]
     Indication: INFECTION
     Route: 042
     Dates: start: 20090514, end: 20090519
  9. DEPAKENE [Concomitant]
     Indication: CONVULSION
     Route: 042
     Dates: start: 20090429, end: 20090524
  10. DEPAKENE [Concomitant]
     Route: 048
     Dates: start: 20090525

REACTIONS (4)
  - HYPOCALCAEMIA [None]
  - HYPOKALAEMIA [None]
  - METABOLIC ALKALOSIS [None]
  - METABOLIC ENCEPHALOPATHY [None]
